FAERS Safety Report 9335022 (Version 2)
Quarter: 2013Q4

REPORT INFORMATION
  Report Type: Spontaneous
  Country: GB (occurrence: GB)
  Receive Date: 20130606
  Receipt Date: 20131105
  Transmission Date: 20140711
  Serious: Yes (Disabling)
  Sender: FDA-Public Use
  Company Number: PHHY2013GB054701

PATIENT
  Sex: Male

DRUGS (8)
  1. LAMOTRIGINE [Suspect]
     Dosage: 22 MG, QD
     Route: 065
     Dates: end: 20130501
  2. DEPAKOTE [Suspect]
     Dosage: 500 MG, QD
     Route: 065
  3. DEPAKOTE [Suspect]
     Dosage: 1000 MG, QD
     Route: 065
  4. DEPAKOTE [Suspect]
     Dosage: 1500 MG, QD
     Route: 065
     Dates: end: 201305
  5. DEPAKOTE [Suspect]
     Dosage: 1500 MG, QD WITHDRAWN ON 13 OR 14-MAY-2013
     Route: 065
     Dates: end: 201305
  6. VENLAFAXINE [Concomitant]
     Dosage: 225 MG, UNK
     Route: 065
  7. MIRTAZAPINE [Concomitant]
     Dosage: 20 MG, UNK
     Route: 065
  8. AMISULPRIDE [Concomitant]
     Dosage: 1000 MG, UNK
     Route: 065

REACTIONS (5)
  - Chest pain [Recovered/Resolved]
  - Sensation of heaviness [Recovered/Resolved]
  - Palpitations [Recovered/Resolved]
  - Restlessness [Recovered/Resolved]
  - Rash [Recovered/Resolved]
